FAERS Safety Report 23118835 (Version 2)
Quarter: 2023Q4

REPORT INFORMATION
  Report Type: Spontaneous
  Country: CN (occurrence: CN)
  Receive Date: 20231028
  Receipt Date: 20231103
  Transmission Date: 20240109
  Serious: Yes (Hospitalization, Other)
  Sender: FDA-Public Use
  Company Number: None

PATIENT
  Age: 27 Year
  Sex: Female
  Weight: 55 kg

DRUGS (2)
  1. PREDNISOLONE [Suspect]
     Active Substance: PREDNISOLONE
     Indication: Glomerulonephritis membranous
     Dosage: 12.5 MILLIGRAM, QD, TABLET
     Route: 048
     Dates: start: 2020, end: 20221109
  2. HYDROXYCHLOROQUINE [Suspect]
     Active Substance: HYDROXYCHLOROQUINE
     Indication: Glomerulonephritis membranous
     Dosage: 0.1 GRAM, EVERY 12 HRS
     Route: 048
     Dates: start: 2020, end: 20221109

REACTIONS (4)
  - Atelectasis [Recovered/Resolved]
  - Pulmonary nocardiosis [Recovered/Resolved]
  - Cerebral nocardiosis [Recovered/Resolved]
  - Brain abscess [Recovered/Resolved]

NARRATIVE: CASE EVENT DATE: 20211001
